FAERS Safety Report 12389901 (Version 1)
Quarter: 2016Q2

REPORT INFORMATION
  Report Type: Spontaneous
  Country: TR (occurrence: TR)
  Receive Date: 20160520
  Receipt Date: 20160520
  Transmission Date: 20160815
  Serious: Yes (Other)
  Sender: FDA-Public Use
  Company Number: TR-JNJFOC-20160511856

PATIENT
  Age: 51 Year
  Sex: Male

DRUGS (1)
  1. REMICADE [Suspect]
     Active Substance: INFLIXIMAB
     Indication: BEHCET^S SYNDROME
     Dosage: AT 0, 2 AND 6 WEEKS AND EVERY 8 WEEKS
     Route: 042
     Dates: start: 201202

REACTIONS (5)
  - Trabeculectomy [Unknown]
  - Off label use [Unknown]
  - Product use issue [Unknown]
  - Ophthalmic herpes simplex [Recovering/Resolving]
  - Viral uveitis [Recovering/Resolving]

NARRATIVE: CASE EVENT DATE: 201202
